FAERS Safety Report 9839953 (Version 1)
Quarter: 2014Q1

REPORT INFORMATION
  Report Type: Spontaneous
  Country: US (occurrence: None)
  Receive Date: 20140117
  Receipt Date: 20140117
  Transmission Date: 20141002
  Serious: No
  Sender: FDA-Public Use
  Company Number: None

PATIENT
  Sex: Male
  Weight: 59.1 kg

DRUGS (2)
  1. ZONEGRAN [Suspect]
     Indication: AUTISM
     Route: 048
     Dates: start: 2006
  2. ZONEGRAN [Suspect]
     Indication: EPILEPSY
     Route: 048
     Dates: start: 2006

REACTIONS (2)
  - Product substitution issue [None]
  - Aggression [None]
